FAERS Safety Report 21768259 (Version 1)
Quarter: 2022Q4

REPORT INFORMATION
  Report Type: Spontaneous
  Country: IT (occurrence: IT)
  Receive Date: 20221222
  Receipt Date: 20221222
  Transmission Date: 20230112
  Serious: Yes (Other)
  Sender: FDA-Public Use
  Company Number: IT-TEVA-2022-IT-2838400

PATIENT
  Age: 85 Year
  Sex: Female

DRUGS (5)
  1. ENALAPRIL [Interacting]
     Active Substance: ENALAPRIL
     Indication: Product used for unknown indication
     Dosage: 10 MILLIGRAM DAILY;
     Route: 065
  2. ASPIRIN [Interacting]
     Active Substance: ASPIRIN
     Indication: Product used for unknown indication
     Dosage: 100 MILLIGRAM DAILY;
     Route: 065
  3. CAPECITABINE [Interacting]
     Active Substance: CAPECITABINE
     Indication: Colon cancer stage II
     Dosage: 1600 MG/M2 DAILY; ON DAYS 1 TO 14, EVERY THREE WEEKS IN MONOTHERAPY
     Route: 048
  4. DIETARY SUPPLEMENT [Interacting]
     Active Substance: DIETARY SUPPLEMENT
     Indication: Supplementation therapy
     Dosage: ASCORBIC ACID/FOLIC ACID/IRON/MALPIGHIA EMARGINATA: 75MG/400MICROG/21MG/300MG
     Route: 065
  5. IRON [Interacting]
     Active Substance: IRON
     Indication: Mineral supplementation
     Dosage: 319 MILLIGRAM DAILY;
     Route: 065

REACTIONS (3)
  - Palmar-plantar erythrodysaesthesia syndrome [Recovered/Resolved]
  - Drug interaction [Unknown]
  - Drug ineffective [Unknown]
